FAERS Safety Report 7072806-4 (Version None)
Quarter: 2010Q4

REPORT INFORMATION
  Report Type: 
  Country: None (occurrence: None)
  Receive Date: 20101029
  Receipt Date: 20100316
  Transmission Date: 20110411
  Serious: No
  Sender: FDA-Public Use
  Company Number: A0850458A

PATIENT
  Age: 85 Year
  Sex: Male

DRUGS (8)
  1. ADVAIR DISKUS 100/50 [Suspect]
     Indication: RESPIRATION ABNORMAL
     Dosage: 1PUFF TWICE PER DAY
     Route: 055
     Dates: start: 20100301
  2. PLAVIX [Concomitant]
  3. METOPROLOL [Concomitant]
  4. FLOMAX [Concomitant]
  5. PROSCAR [Concomitant]
  6. OMEPRAZOLE [Concomitant]
  7. FISH OIL [Concomitant]
  8. UNKNOWN SUPPLEMENT [Concomitant]

REACTIONS (1)
  - DIZZINESS [None]
